FAERS Safety Report 5690913-5 (Version None)
Quarter: 2008Q2

REPORT INFORMATION
  Report Type: 
  Country: None (occurrence: None)
  Receive Date: 20080401
  Receipt Date: 20080326
  Transmission Date: 20081010
  Serious: Yes (Hospitalization)
  Sender: FDA-Public Use
  Company Number: US-JNJFOC-20080306539

PATIENT
  Sex: Male
  Weight: 102.06 kg

DRUGS (5)
  1. INVEGA [Suspect]
     Route: 048
  2. INVEGA [Suspect]
     Indication: SCHIZOPHRENIA, PARANOID TYPE
     Route: 048
  3. HERBAL PRODUCT [Concomitant]
  4. VITAMIN [Concomitant]
  5. CHLOROPHYLL [Concomitant]

REACTIONS (4)
  - ABNORMAL BEHAVIOUR [None]
  - DECREASED APPETITE [None]
  - INSOMNIA [None]
  - RESTLESSNESS [None]
